FAERS Safety Report 7755805-6 (Version None)
Quarter: 2011Q3

REPORT INFORMATION
  Report Type: 
  Country: None (occurrence: None)
  Receive Date: 20110916
  Receipt Date: 20110914
  Transmission Date: 20111222
  Serious: Yes (Other)
  Sender: FDA-Public Use
  Company Number: BR-PFIZER INC-2011205566

PATIENT
  Age: 71 Year
  Sex: Female
  Weight: 75.9 kg

DRUGS (7)
  1. PROPRANOLOL [Concomitant]
     Dosage: 40 MG, 1X/DAY
     Route: 048
  2. OMEPRAZOLE [Concomitant]
     Dosage: 20 MG, 2X/DAY
     Route: 048
  3. SUTENT [Suspect]
     Indication: RENAL CELL CARCINOMA
     Dosage: 50 MG, 1X/DAY
     Route: 048
     Dates: start: 20100709
  4. METHYLDOPA [Concomitant]
     Dosage: 250 MG, 2X/DAY
     Route: 048
  5. METOCLOPRAMIDE [Concomitant]
     Dosage: 10 MG, 4X/DAY
     Route: 048
     Dates: start: 20100709
  6. CODEINE PHOSPHATE AND ACETAMINOPHEN [Concomitant]
     Dosage: [PARACETAMOL 500MG] / [CODEIN 30MG], EVERY 6 HOURS
     Route: 048
     Dates: start: 20100709
  7. SUTENT [Suspect]
     Dosage: 25 MG, 1X/DAY
     Route: 048

REACTIONS (7)
  - SPINAL COLUMN INJURY [None]
  - PYREXIA [None]
  - RASH MACULAR [None]
  - MUSCULOSKELETAL PAIN [None]
  - ASTHENIA [None]
  - EPISTAXIS [None]
  - MUCOSAL INFLAMMATION [None]
